FAERS Safety Report 7348457 (Version 2)
Quarter: 2013Q4

REPORT INFORMATION
  Report Type: Spontaneous
  Country: US (occurrence: US)
  Receive Date: 20100408
  Receipt Date: 20131206
  Transmission Date: 20140711
  Serious: No
  Sender: FDA-Public Use
  Company Number: US-JNJFOC-20100308310

PATIENT
  Age: 38 Year
  Sex: Male
  Weight: 86.18 kg

DRUGS (4)
  1. DURAGESIC [Suspect]
     Indication: ARTHRITIS
     Route: 062
     Dates: start: 201001
  2. CYMBALTA [Concomitant]
     Indication: PAIN
     Route: 048
  3. NEURONTIN [Concomitant]
     Indication: PAIN
     Route: 048
  4. LACTULOSE [Concomitant]
     Indication: PRODUCT USED FOR UNKNOWN INDICATION
     Dosage: 2 TABLESPOONS ONCE PER DAY
     Route: 048

REACTIONS (3)
  - Expired drug administered [Not Recovered/Not Resolved]
  - Medication error [Unknown]
  - Product quality issue [Unknown]
